FAERS Safety Report 14558996 (Version 1)
Quarter: 2018Q1

REPORT INFORMATION
  Report Type: Report from Study
  Country: ES (occurrence: ES)
  Receive Date: 20180221
  Receipt Date: 20180221
  Transmission Date: 20180509
  Serious: Yes (Hospitalization)
  Sender: FDA-Public Use
  Company Number: ES-TEVA-2018-ES-857691

PATIENT
  Age: 88 Year
  Sex: Female

DRUGS (4)
  1. ARICEPT 10 [Concomitant]
     Dosage: 1-0-0
     Route: 048
     Dates: start: 20140101
  2. AXURA 20 [Concomitant]
     Dosage: 1 CP DIA
     Route: 048
     Dates: start: 20140101
  3. FUROSEMIDA 40 MG [Suspect]
     Active Substance: FUROSEMIDE
     Dosage: 40 MILLIGRAM DAILY; 1-0-0
     Route: 048
     Dates: start: 20150505, end: 20170425
  4. OMEPRAZOL 20 [Concomitant]
     Active Substance: OMEPRAZOLE
     Dosage: 1 CP DIA
     Route: 048
     Dates: start: 20140101

REACTIONS (1)
  - Acute kidney injury [Recovered/Resolved]

NARRATIVE: CASE EVENT DATE: 20170413
